FAERS Safety Report 5717473-4 (Version None)
Quarter: 2008Q2

REPORT INFORMATION
  Report Type: 
  Country: None (occurrence: None)
  Receive Date: 20080424
  Receipt Date: 20080424
  Transmission Date: 20081010
  Serious: Yes (Hospitalization)
  Sender: FDA-Public Use
  Company Number: None

PATIENT
  Sex: Female
  Weight: 75.91 kg

DRUGS (4)
  1. FLUOROURACIL [Suspect]
     Dosage: 20720 MG
     Dates: end: 20080403
  2. BEVACIZUMAB (RHUMAB VEGF) [Suspect]
     Dosage: 1520 MG
     Dates: end: 20080401
  3. LEUCOVORIN CALCIUM [Suspect]
     Dosage: 2960 MG
     Dates: end: 20080401
  4. ELOXATIN [Suspect]
     Dosage: 628 MG
     Dates: end: 20080401

REACTIONS (2)
  - PELVIC VENOUS THROMBOSIS [None]
  - THROMBOSIS [None]
